FAERS Safety Report 20164058 (Version 2)
Quarter: 2022Q2

REPORT INFORMATION
  Report Type: Spontaneous
  Country: US (occurrence: US)
  Receive Date: 20211209
  Receipt Date: 20220419
  Transmission Date: 20220721
  Serious: Yes (Other)
  Sender: FDA-Public Use
  Company Number: US-GLAXOSMITHKLINE-US2021GSK252104

PATIENT
  Sex: Male

DRUGS (8)
  1. RANITIDINE [Suspect]
     Active Substance: RANITIDINE
     Indication: Dyspepsia
     Dosage: UNK, QD
     Route: 065
     Dates: start: 200401, end: 201701
  2. RANITIDINE [Suspect]
     Active Substance: RANITIDINE
     Dosage: 25 MG, QD
     Route: 065
     Dates: start: 200401, end: 201701
  3. RANITIDINE [Suspect]
     Active Substance: RANITIDINE
     Indication: Dyspepsia
     Dosage: UNK, QD
     Route: 065
     Dates: start: 200401, end: 201701
  4. RANITIDINE [Suspect]
     Active Substance: RANITIDINE
     Dosage: 25 MG, QD
     Route: 065
     Dates: start: 200401, end: 201701
  5. RANITIDINE [Suspect]
     Active Substance: RANITIDINE
     Indication: Dyspepsia
     Dosage: UNK, QD
     Route: 065
     Dates: start: 200401, end: 201701
  6. RANITIDINE [Suspect]
     Active Substance: RANITIDINE
     Dosage: 25 MG, QD
     Route: 065
     Dates: start: 200401, end: 201701
  7. RANITIDINE [Suspect]
     Active Substance: RANITIDINE
     Indication: Dyspepsia
     Dosage: UNK, QD
     Route: 065
     Dates: start: 200401, end: 201701
  8. RANITIDINE [Suspect]
     Active Substance: RANITIDINE
     Dosage: 25 MG, QD
     Route: 065
     Dates: start: 200401, end: 201701

REACTIONS (1)
  - Prostate cancer [Unknown]
